FAERS Safety Report 9559356 (Version 3)
Quarter: 2014Q2

REPORT INFORMATION
  Report Type: Spontaneous
  Country: US (occurrence: None)
  Receive Date: 20130925
  Receipt Date: 20140404
  Transmission Date: 20141212
  Serious: Yes (Other)
  Sender: FDA-Public Use
  Company Number: 2013-US-000976

PATIENT
  Age: 59 Year
  Sex: Male
  Weight: 68 kg

DRUGS (9)
  1. XYREM [Suspect]
     Indication: NARCOLEPSY
     Route: 048
     Dates: start: 20090327, end: 2009
  2. XYREM [Suspect]
     Indication: SOMNOLENCE
     Route: 048
     Dates: start: 20090327, end: 2009
  3. KLONOPIN (CLONAZEPAM) (TABLETS) [Concomitant]
  4. RITALIN [Concomitant]
  5. AMLODIPINE (AMLODIPINE BESILATE) [Concomitant]
  6. VALSARTAN (VALSARTAN) [Concomitant]
  7. OMEPRAZOLE (OMEPRAZOLE) [Concomitant]
  8. ALENDRONATE (ALENDRONATE SODIUM) [Concomitant]
  9. GABAPENTIN (GABAPENTIN) [Concomitant]

REACTIONS (2)
  - Dermal cyst [None]
  - Spinal fusion surgery [None]
